FAERS Safety Report 10151633 (Version 2)
Quarter: 2014Q2

REPORT INFORMATION
  Report Type: Report from Study
  Country: TR (occurrence: TR)
  Receive Date: 20140505
  Receipt Date: 20140505
  Transmission Date: 20141212
  Serious: Yes (Other)
  Sender: FDA-Public Use
  Company Number: TR-ROCHE-1373947

PATIENT
  Sex: 0

DRUGS (2)
  1. BEVACIZUMAB [Suspect]
     Indication: DIABETIC RETINAL OEDEMA
     Dosage: DOSE: SINGLE DOSE OF 1.25MG/0.05ML
     Route: 050
  2. BEVACIZUMAB [Suspect]
     Indication: AGE-RELATED MACULAR DEGENERATION

REACTIONS (1)
  - Corneal oedema [Recovered/Resolved]
